FAERS Safety Report 25585472 (Version 2)
Quarter: 2025Q4

REPORT INFORMATION
  Report Type: Report from Study
  Country: US (occurrence: US)
  Receive Date: 20250721
  Receipt Date: 20251112
  Transmission Date: 20260118
  Serious: Yes (Other)
  Sender: BAYER HEALTHCARE PHARMACEUTICALS INC.
  Company Number: US-BAYER-2025A094676

PATIENT
  Sex: Female

DRUGS (5)
  1. ADEMPAS [Suspect]
     Active Substance: RIOCIGUAT
     Indication: Pulmonary arterial hypertension
     Dosage: UNK
  2. ADEMPAS [Suspect]
     Active Substance: RIOCIGUAT
     Indication: Pulmonary arterial hypertension
     Dosage: 2.5 MG, TID
     Route: 048
     Dates: start: 202009
  3. AMBRISENTAN [Concomitant]
     Active Substance: AMBRISENTAN
  4. TYMLOS [Concomitant]
     Active Substance: ABALOPARATIDE
     Indication: Osteoporotic fracture
  5. TYVASO [Concomitant]
     Active Substance: TREPROSTINIL

REACTIONS (9)
  - Syncope [None]
  - General physical health deterioration [Not Recovered/Not Resolved]
  - Chest pain [None]
  - Fatigue [None]
  - Dizziness [None]
  - Decreased activity [Not Recovered/Not Resolved]
  - Mood altered [Not Recovered/Not Resolved]
  - Chest pain [None]
  - Fatigue [None]
